FAERS Safety Report 14405518 (Version 1)
Quarter: 2018Q1

REPORT INFORMATION
  Report Type: Spontaneous
  Country: US (occurrence: US)
  Receive Date: 20180118
  Receipt Date: 20180118
  Transmission Date: 20180509
  Serious: No
  Sender: FDA-Public Use
  Company Number: US-PFIZER INC-2018020625

PATIENT
  Age: 68 Year
  Sex: Female
  Weight: 80 kg

DRUGS (1)
  1. IBRANCE [Suspect]
     Active Substance: PALBOCICLIB
     Indication: BREAST CANCER
     Dosage: 75 MG, CYCLIC (DAILY X 21 DAYS 7 DAYS OFF)
     Route: 048
     Dates: start: 201506, end: 201801

REACTIONS (1)
  - Neoplasm progression [Unknown]
